FAERS Safety Report 6358027-9 (Version None)
Quarter: 2009Q3

REPORT INFORMATION
  Report Type: 
  Country: None (occurrence: None)
  Receive Date: 20090916
  Receipt Date: 20090908
  Transmission Date: 20100115
  Serious: Yes (Hospitalization, Congenital Anomaly)
  Sender: FDA-Public Use
  Company Number: A0680647A

PATIENT
  Sex: Female
  Weight: 2.7 kg

DRUGS (4)
  1. PAXIL [Suspect]
     Indication: DEPRESSION
     Dosage: 15MG PER DAY
     Dates: start: 19930101, end: 20030709
  2. VITAMIN TAB [Concomitant]
  3. LITHIUM CARBONATE [Concomitant]
     Dates: end: 19980701
  4. EFFEXOR [Concomitant]

REACTIONS (4)
  - ANAL ATRESIA [None]
  - CARDIAC MURMUR [None]
  - DRUG EXPOSURE DURING PREGNANCY [None]
  - MULTIPLE CONGENITAL ABNORMALITIES [None]
